FAERS Safety Report 19452884 (Version 2)
Quarter: 2021Q3

REPORT INFORMATION
  Report Type: Report from Study
  Country: HK (occurrence: HK)
  Receive Date: 20210623
  Receipt Date: 20210823
  Transmission Date: 20211014
  Serious: Yes (Death, Other)
  Sender: FDA-Public Use
  Company Number: HK-ASTRAZENECA-2021A545239

PATIENT
  Age: 82 Year

DRUGS (6)
  1. TAGRISSO [Suspect]
     Active Substance: OSIMERTINIB
     Dosage: ALTERNATE DAY
     Route: 048
     Dates: start: 20170215
  2. TAGRISSO [Suspect]
     Active Substance: OSIMERTINIB
     Dosage: 80MG 2 DAYS ON 1 DAY OFF SCHEME
     Route: 048
     Dates: start: 20200122, end: 202003
  3. TAGRISSO [Suspect]
     Active Substance: OSIMERTINIB
     Route: 048
     Dates: start: 202007, end: 20201015
  4. TAGRISSO [Suspect]
     Active Substance: OSIMERTINIB
     Route: 048
     Dates: start: 201607, end: 20170124
  5. TAGRISSO [Suspect]
     Active Substance: OSIMERTINIB
     Route: 048
     Dates: start: 201704, end: 20201015
  6. TAGRISSO [Suspect]
     Active Substance: OSIMERTINIB
     Route: 048
     Dates: start: 20200401

REACTIONS (4)
  - Pneumonia [Fatal]
  - Lung neoplasm malignant [Fatal]
  - Malignant neoplasm progression [Not Recovered/Not Resolved]
  - Electrocardiogram QT prolonged [Not Recovered/Not Resolved]

NARRATIVE: CASE EVENT DATE: 20170124
